FAERS Safety Report 10881470 (Version 1)
Quarter: 2015Q1

REPORT INFORMATION
  Report Type: Spontaneous
  Country: IT (occurrence: None)
  Receive Date: 20150226
  Receipt Date: 20150226
  Transmission Date: 20150721
  Serious: Yes (Other)
  Sender: FDA-Public Use
  Company Number: 2751558

PATIENT
  Age: 45 Year
  Sex: Male

DRUGS (8)
  1. CISPLATIN. [Suspect]
     Active Substance: CISPLATIN
     Indication: B-CELL LYMPHOMA
     Dosage: 95 MG (CYCLICAL) INTRAVENOUS
     Route: 042
     Dates: start: 20141218, end: 20150110
  2. MABTHERA [Suspect]
     Active Substance: RITUXIMAB
     Indication: B-CELL LYMPHOMA
     Dosage: 700 MG, CYCLICAL, INTRAVENOUS
     Route: 042
     Dates: start: 20141222, end: 20150112
  3. SELEPARINA [Concomitant]
     Active Substance: NADROPARIN CALCIUM
  4. OMEPRAZOLE. [Concomitant]
     Active Substance: OMEPRAZOLE
  5. RISPERIDONE. [Concomitant]
     Active Substance: RISPERIDONE
  6. CYTARABINE. [Suspect]
     Active Substance: CYTARABINE
     Indication: B-CELL LYMPHOMA
     Dosage: 3800 MG (CYCLICAL) INTRAVENOUS
     Route: 042
     Dates: start: 20141219, end: 20150111
  7. BISOPROLOLO DOC [Concomitant]
  8. LASIX [Concomitant]
     Active Substance: FUROSEMIDE

REACTIONS (4)
  - Diarrhoea [None]
  - Syncope [None]
  - Vomiting [None]
  - Orthostatic hypotension [None]

NARRATIVE: CASE EVENT DATE: 20150116
